FAERS Safety Report 9720716 (Version 1)
Quarter: 2013Q4

REPORT INFORMATION
  Report Type: Spontaneous
  Country: GR (occurrence: GR)
  Receive Date: 20131129
  Receipt Date: 20131129
  Transmission Date: 20140711
  Serious: Yes (Hospitalization)
  Sender: FDA-Public Use
  Company Number: PHHY2013GR137062

PATIENT
  Age: 59 Year
  Sex: Female

DRUGS (7)
  1. VALSARTAN [Suspect]
     Indication: HYPERTENSION
     Dosage: 320 MG, QD
  2. METOPROLOL [Suspect]
     Indication: HYPERTENSION
     Dosage: 25 MG, BID
  3. FUROSEMIDE [Suspect]
     Indication: HYPERTENSION
     Dosage: 250 MG, QD
  4. CLONIDINE [Suspect]
     Indication: HYPERTENSION
     Dosage: 150 UG, QID
  5. DOXAZOSIN [Suspect]
     Indication: HYPERTENSION
     Dosage: 2 MG, QID
  6. PHENYTOIN [Concomitant]
  7. DARBEPOETIN ALFA [Concomitant]
     Dosage: 40 UG, EVERY TWO WEEKS

REACTIONS (1)
  - Hypertension [Recovering/Resolving]
